FAERS Safety Report 18375708 (Version 1)
Quarter: 2020Q4

REPORT INFORMATION
  Report Type: Spontaneous
  Country: US (occurrence: US)
  Receive Date: 20201009
  Receipt Date: 20201009
  Transmission Date: 20210114
  Serious: Yes (Life-Threatening, Hospitalization)
  Sender: FDA-Public Use
  Company Number: None

PATIENT
  Age: 53 Year
  Sex: Female
  Weight: 91 kg

DRUGS (1)
  1. ALLOPURINOL. [Suspect]
     Active Substance: ALLOPURINOL
     Indication: HYPERURICAEMIA
     Route: 048
     Dates: end: 20201002

REACTIONS (6)
  - Pyrexia [None]
  - Oral mucosal eruption [None]
  - Rash [None]
  - Toxic epidermal necrolysis [None]
  - SJS-TEN overlap [None]
  - Eyelid rash [None]

NARRATIVE: CASE EVENT DATE: 20201002
